FAERS Safety Report 18687608 (Version 1)
Quarter: 2020Q4

REPORT INFORMATION
  Report Type: Spontaneous
  Country: NO (occurrence: NO)
  Receive Date: 20201231
  Receipt Date: 20201231
  Transmission Date: 20210114
  Serious: Yes (Hospitalization)
  Sender: FDA-Public Use
  Company Number: NVSC2020NO343866

PATIENT
  Age: 48 Year
  Sex: Male

DRUGS (5)
  1. HYRIMOZ [Suspect]
     Active Substance: ADALIMUMAB-ADAZ
     Indication: PSORIASIS
     Dosage: 40 MG (THE TREATMENT WAS CHANGED FROM SECUKINUMAB TO ADALIMUMAB. EXACT DATES ARE NOT SPECIFIED)
     Route: 058
  2. NOBLIGAN [Concomitant]
     Active Substance: TRAMADOL HYDROCHLORIDE
     Indication: CHEST PAIN
     Dosage: 150 MG (150 MG V/BEHOV)
     Route: 048
  3. VOLTAREN [Concomitant]
     Active Substance: DICLOFENAC SODIUM
     Indication: CHEST PAIN
     Dosage: 50 MG (50 MG AS REQUIRED, MAX 3)
     Route: 048
  4. STESOLID [Concomitant]
     Active Substance: DIAZEPAM
     Indication: PRODUCT USED FOR UNKNOWN INDICATION
     Dosage: 1 DF (1 TABLETT VED BEHOV, MAX 3)
     Route: 048
  5. COSENTYX [Suspect]
     Active Substance: SECUKINUMAB
     Indication: PSORIASIS
     Dosage: 150 MG (EXACT THERAPY END DATE NOT SPECIFIED)
     Route: 058
     Dates: start: 20190704, end: 2019

REACTIONS (1)
  - Pulmonary vasculitis [Recovering/Resolving]

NARRATIVE: CASE EVENT DATE: 201910
